FAERS Safety Report 5171387-X (Version None)
Quarter: 2006Q4

REPORT INFORMATION
  Report Type: 
  Country: None (occurrence: None)
  Receive Date: 20061213
  Receipt Date: 20060827
  Transmission Date: 20070319
  Serious: Yes (Hospitalization)
  Sender: FDA-Public Use
  Company Number: US-AMGEN-US191462

PATIENT
  Sex: Male

DRUGS (14)
  1. ENBREL [Suspect]
     Indication: RHEUMATOID ARTHRITIS
     Route: 058
     Dates: start: 20060616, end: 20060801
  2. DARVOCET-N 100 [Concomitant]
  3. PREVACID [Concomitant]
  4. LIPITOR [Concomitant]
  5. DIGOXIN [Concomitant]
  6. DILTIAZEM HCL [Concomitant]
  7. TENEX [Concomitant]
  8. LASIX [Concomitant]
  9. SPIRIVA [Concomitant]
  10. ASPIRIN [Concomitant]
  11. ATIVAN [Concomitant]
  12. FLOMAX [Concomitant]
  13. TYLENOL [Concomitant]
  14. XOPENEX [Concomitant]

REACTIONS (1)
  - STAPHYLOCOCCAL INFECTION [None]
